FAERS Safety Report 10128663 (Version 2)
Quarter: 2014Q2

REPORT INFORMATION
  Report Type: Spontaneous
  Country: US (occurrence: US)
  Receive Date: 20140428
  Receipt Date: 20140523
  Transmission Date: 20141212
  Serious: Yes (Hospitalization)
  Sender: FDA-Public Use
  Company Number: US-JNJFOC-20140412012

PATIENT
  Age: 73 Year
  Sex: Female
  Weight: 49.4 kg

DRUGS (18)
  1. RISPERDAL [Suspect]
     Indication: SCHIZOPHRENIA
     Route: 048
     Dates: start: 20040130, end: 20130919
  2. AXITINIB [Suspect]
     Indication: CLEAR CELL RENAL CELL CARCINOMA
     Route: 065
     Dates: start: 20130724, end: 20130919
  3. AXITINIB [Suspect]
     Indication: CLEAR CELL RENAL CELL CARCINOMA
     Route: 065
     Dates: start: 20130625, end: 20130627
  4. CARVEDILOL [Suspect]
     Indication: STRESS CARDIOMYOPATHY
     Route: 048
     Dates: start: 20130927
  5. CARVEDILOL [Suspect]
     Indication: STRESS CARDIOMYOPATHY
     Route: 048
     Dates: start: 20131024, end: 20131031
  6. CARVEDILOL [Suspect]
     Indication: STRESS CARDIOMYOPATHY
     Route: 048
     Dates: start: 20130920, end: 20130922
  7. CELECOX [Concomitant]
     Indication: BACK PAIN
     Route: 048
     Dates: start: 20130528, end: 20130920
  8. CELECOX [Concomitant]
     Indication: BACK PAIN
     Route: 048
     Dates: start: 20130927
  9. HERBAL EXTRACTS NOS [Concomitant]
     Indication: NEUROSIS
     Route: 048
     Dates: start: 20090515
  10. RILMAZAFONE HYDROCHLORIDE [Concomitant]
     Indication: INSOMNIA
     Route: 048
     Dates: start: 20040130
  11. ALENDRONATE SODIUM [Concomitant]
     Indication: OSTEOPOROSIS
     Route: 048
     Dates: start: 20130528
  12. ELDECALCITOL [Concomitant]
     Indication: OSTEOPOROSIS
     Route: 048
     Dates: start: 20130528
  13. OLMESARTAN MEDOXOMIL [Concomitant]
     Indication: HYPERTENSION
     Route: 048
     Dates: start: 20101224
  14. AZELNIDIPINE [Concomitant]
     Indication: HYPERTENSION
     Route: 048
     Dates: start: 20101224
  15. TRICHLORMETHIAZIDE [Concomitant]
     Indication: HYPERTENSION
     Route: 048
     Dates: start: 20130626
  16. ESOMEPRAZOLE MAGNESIUM [Concomitant]
     Indication: GASTRITIS PROPHYLAXIS
     Route: 048
     Dates: start: 20130925
  17. ALFACALCIDOL [Concomitant]
     Indication: LUMBAR SPINAL STENOSIS
     Route: 048
     Dates: start: 20131002
  18. DICLOFENAC SODIUM [Concomitant]
     Indication: LUMBAR SPINAL STENOSIS
     Route: 065
     Dates: start: 20131001

REACTIONS (3)
  - Rhabdomyolysis [Recovered/Resolved]
  - Alanine aminotransferase increased [Recovered/Resolved]
  - Aspartate aminotransferase increased [Recovered/Resolved]
